FAERS Safety Report 20832498 (Version 1)
Quarter: 2022Q2

REPORT INFORMATION
  Report Type: 
  Country: None (occurrence: None)
  Receive Date: 20220516
  Receipt Date: 20220516
  Transmission Date: 20220721
  Serious: No
  Sender: FDA-Public Use
  Company Number: US-ROCHE-2699400

PATIENT
  Age: 68 Year
  Weight: 86.260 kg

DRUGS (12)
  1. OCREVUS [Suspect]
     Active Substance: OCRELIZUMAB
     Dates: start: 20200403
  2. OCREVUS [Suspect]
     Active Substance: OCRELIZUMAB
  3. OXYCODONE [Suspect]
     Active Substance: OXYCODONE
  4. PRAVASTATIN [Concomitant]
     Active Substance: PRAVASTATIN
     Dosage: DOSE: 60
  5. LEVOTHYROXINE [Concomitant]
     Active Substance: LEVOTHYROXINE
  6. DICLOFENAC [Concomitant]
     Active Substance: DICLOFENAC
  7. VITAMIN B12 [Concomitant]
     Active Substance: CYANOCOBALAMIN
  8. VITAMIN B COMPLEX [Concomitant]
     Active Substance: CYANOCOBALAMIN\DEXPANTHENOL\NIACINAMIDE\PYRIDOXINE HYDROCHLORIDE\RIBOFLAVIN 5^-PHOSPHATE SODIUM\THIA
  9. VITAMIN D3 [Concomitant]
     Active Substance: CHOLECALCIFEROL
  10. DULOXETINE [Concomitant]
     Active Substance: DULOXETINE
  11. TYLENOL [Concomitant]
     Active Substance: ACETAMINOPHEN
     Dosage: 2 OVER THE COUNTER PILLS
  12. BENADRYL [Concomitant]
     Active Substance: DIPHENHYDRAMINE HYDROCHLORIDE

REACTIONS (11)
  - Meniscus injury [None]
  - Multiple sclerosis relapse [None]
  - Headache [None]
  - Arthralgia [None]
  - Hyperthyroidism [None]
  - Systemic infection [None]
  - Fatigue [None]
  - Candida infection [None]
  - Weight decreased [None]
  - Constipation [None]
  - Somnolence [None]

NARRATIVE: CASE EVENT DATE: 20200901
